FAERS Safety Report 19481883 (Version 1)
Quarter: 2021Q3

REPORT INFORMATION
  Report Type: Spontaneous
  Country: DE (occurrence: DE)
  Receive Date: 20210701
  Receipt Date: 20210701
  Transmission Date: 20211014
  Serious: Yes (Hospitalization)
  Sender: FDA-Public Use
  Company Number: DE-ACCORD-230106

PATIENT
  Age: 76 Year
  Sex: Female

DRUGS (15)
  1. BOSENTAN. [Concomitant]
     Active Substance: BOSENTAN
     Dosage: 125 MG, 1?0?1?0, TABLETS
     Route: 048
  2. ERYTHROPOIETIN HUMAN [Concomitant]
     Active Substance: ERYTHROPOIETIN
     Dosage: 2000 IU, 1X THURSDAY, SOLUTION FOR INJECTION / INFUSION
     Route: 058
  3. SODIUM BICARBONATE. [Concomitant]
     Active Substance: SODIUM BICARBONATE
     Dosage: 1000 MG, 1?1?1?0, TABLETS
     Route: 048
  4. PROLIA [Concomitant]
     Active Substance: DENOSUMAB
     Dosage: 60 MG, EVERY 26 WEEKS, SOLUTION FOR INJECTION / INFUSION
     Route: 058
  5. MAGNESIUM [Concomitant]
     Active Substance: MAGNESIUM
     Dosage: 300 MG, 0?0?1?0, CAPSULES
     Route: 048
  6. ACETYLSALICYLIC ACID [Suspect]
     Active Substance: ASPIRIN
     Indication: PRODUCT USED FOR UNKNOWN INDICATION
     Dosage: 100 UG, 1?0?0?0, TABLETS
     Route: 048
  7. PANTOPRAZOLE [Concomitant]
     Active Substance: PANTOPRAZOLE
     Dosage: 40 MG, 1?0?0?0, TABLETS
     Route: 048
  8. BRIVARACETAM [Concomitant]
     Active Substance: BRIVARACETAM
     Dosage: 100 MG, 1?0?1?0, TABLETS
     Route: 048
  9. COLECALCIFEROL [Concomitant]
     Active Substance: CHOLECALCIFEROL
     Dosage: 1000 IE, 3?0?0?0, TABLETS
     Route: 048
  10. CANDESARTAN. [Concomitant]
     Active Substance: CANDESARTAN
     Dosage: 4 MG, 1?0?1?0, TABLETS
     Route: 048
  11. METOPROLOL. [Concomitant]
     Active Substance: METOPROLOL
     Dosage: 47.5 MG, 1?0?1?0, TABLETS
     Route: 048
  12. AMLODIPINE [Concomitant]
     Active Substance: AMLODIPINE BESYLATE
     Dosage: 5 MG, 1?0?1?0, TABLETS
     Route: 048
  13. CLOPIDOGREL [Suspect]
     Active Substance: CLOPIDOGREL BISULFATE
     Indication: PRODUCT USED FOR UNKNOWN INDICATION
     Dosage: 75 MG, 1?0?0?0, TABLETS
     Route: 048
  14. CALCITRIOL. [Concomitant]
     Active Substance: CALCITRIOL
     Dosage: 25 UG, 1?0?0?0, CAPSULES
     Route: 048
  15. TORASEMIDE [Concomitant]
     Active Substance: TORSEMIDE
     Dosage: 20 MG, 1?0?0?0, TABLETS
     Route: 048

REACTIONS (3)
  - Dizziness [Unknown]
  - Haematochezia [Unknown]
  - Feeling cold [Unknown]
